FAERS Safety Report 4586104-1 (Version None)
Quarter: 2005Q1

REPORT INFORMATION
  Report Type: 
  Country: None (occurrence: None)
  Receive Date: 20050125
  Receipt Date: 20041015
  Transmission Date: 20050727
  Serious: No
  Sender: FDA-Public Use
  Company Number: USA041081246

PATIENT
  Age: 75 Year
  Sex: Female
  Weight: 62 kg

DRUGS (2)
  1. FORTEO [Suspect]
     Dosage: 20 UG/ 1 DAY
     Dates: start: 20041004
  2. ENBREL [Concomitant]

REACTIONS (1)
  - INJECTION SITE ERYTHEMA [None]
